FAERS Safety Report 15238447 (Version 2)
Quarter: 2018Q3

REPORT INFORMATION
  Report Type: Spontaneous
  Country: FR (occurrence: FR)
  Receive Date: 20180803
  Receipt Date: 20180810
  Transmission Date: 20181010
  Serious: Yes (Hospitalization)
  Sender: FDA-Public Use
  Company Number: PHHY2018FR057987

PATIENT
  Age: 63 Year
  Sex: Female

DRUGS (5)
  1. AERIUS [Suspect]
     Active Substance: DESLORATADINE
     Indication: ERYTHEMA
     Dosage: 5 MG, QD
     Route: 048
     Dates: start: 20180522, end: 20180524
  2. LOCOID [Suspect]
     Active Substance: HYDROCORTISONE BUTYRATE
     Indication: ERYTHEMA
     Dosage: UNK (1/2 ? 1/3 DE TUBE PAR JOUR.)
     Route: 003
     Dates: start: 20180522, end: 20180524
  3. IRBESARTAN. [Suspect]
     Active Substance: IRBESARTAN
     Indication: HYPERTENSION
     Dosage: 150 MG (IN THE MORNING)
     Route: 048
  4. ROSUVASTATINE [Suspect]
     Active Substance: ROSUVASTATIN
     Indication: HYPERCHOLESTEROLAEMIA
     Dosage: 5 MG (LE SOIR.)
     Route: 048
  5. CLOPIDOGREL HYDROCHLORIDE [Concomitant]
     Active Substance: CLOPIDOGREL HYDROCHLORIDE
     Indication: PRODUCT USED FOR UNKNOWN INDICATION
     Dosage: UNK
     Route: 065

REACTIONS (1)
  - Rash erythematous [Recovering/Resolving]

NARRATIVE: CASE EVENT DATE: 20180522
